FAERS Safety Report 13941971 (Version 2)
Quarter: 2017Q3

REPORT INFORMATION
  Report Type: Spontaneous
  Country: IE (occurrence: IE)
  Receive Date: 20170906
  Receipt Date: 20170927
  Transmission Date: 20171127
  Serious: Yes (Other)
  Sender: FDA-Public Use
  Company Number: IE-MYLANLABS-2017M1050036

PATIENT
  Age: 53 Year
  Sex: Male
  Weight: 78 kg

DRUGS (4)
  1. CLOZARIL [Suspect]
     Active Substance: CLOZAPINE
     Indication: SCHIZOPHRENIA
     Dosage: UNK
     Route: 048
     Dates: start: 20170802
  2. CLOZARIL [Suspect]
     Active Substance: CLOZAPINE
     Dosage: 12.5 MG, PM
     Route: 048
     Dates: start: 20170804, end: 20170804
  3. CLOZARIL [Suspect]
     Active Substance: CLOZAPINE
     Dosage: 12.5 MG, PM
     Route: 048
     Dates: start: 20170803
  4. DIAZEPAM. [Concomitant]
     Active Substance: DIAZEPAM
     Indication: SCHIZOAFFECTIVE DISORDER
     Dosage: 5 MG, BID
     Route: 048
     Dates: start: 20170731, end: 20170804

REACTIONS (11)
  - Blood potassium decreased [Recovered/Resolved]
  - Blood chloride increased [Recovered/Resolved]
  - Blood calcium decreased [Recovered/Resolved]
  - Blood albumin decreased [Not Recovered/Not Resolved]
  - C-reactive protein increased [Not Recovered/Not Resolved]
  - Pneumonia [Recovering/Resolving]
  - Pulmonary embolism [Recovering/Resolving]
  - General physical health deterioration [Unknown]
  - Blood creatinine decreased [Not Recovered/Not Resolved]
  - Liver function test increased [Not Recovered/Not Resolved]
  - Blood urea decreased [Recovered/Resolved]

NARRATIVE: CASE EVENT DATE: 201708
